FAERS Safety Report 16180874 (Version 1)
Quarter: 2019Q2

REPORT INFORMATION
  Report Type: Spontaneous
  Country: US (occurrence: US)
  Receive Date: 20190410
  Receipt Date: 20190410
  Transmission Date: 20190711
  Serious: No
  Sender: FDA-Public Use
  Company Number: US-BAYER-2019-069809

PATIENT
  Age: 46 Year
  Sex: Male
  Weight: 122 kg

DRUGS (1)
  1. ALEVE [Suspect]
     Active Substance: NAPROXEN SODIUM
     Indication: PAIN
     Dosage: UNK, 1 EVERY 8 HOURS WHILE SYMPTOMS LASTS.
     Route: 048

REACTIONS (4)
  - Sensory disturbance [Unknown]
  - Drug ineffective for unapproved indication [Unknown]
  - Head injury [Unknown]
  - Eye irritation [Unknown]
